FAERS Safety Report 20882511 (Version 1)
Quarter: 2022Q2

REPORT INFORMATION
  Report Type: Spontaneous
  Country: KE (occurrence: KE)
  Receive Date: 20220527
  Receipt Date: 20220527
  Transmission Date: 20220720
  Serious: Yes (Other)
  Sender: FDA-Public Use
  Company Number: KE-AstraZeneca-2022A193368

PATIENT

DRUGS (2)
  1. ZOLADEX [Suspect]
     Active Substance: GOSERELIN ACETATE
     Indication: Prostate cancer
     Dosage: 10.8 MG, EVERY THREE MONTHS
     Route: 058
     Dates: start: 20220516, end: 20220516
  2. ZOLADEX [Suspect]
     Active Substance: GOSERELIN ACETATE
     Indication: Prostate cancer
     Dosage: UNK
     Route: 065

REACTIONS (2)
  - Haematoma [Recovering/Resolving]
  - Injection site haemorrhage [Recovering/Resolving]

NARRATIVE: CASE EVENT DATE: 20220517
